FAERS Safety Report 18234703 (Version 2)
Quarter: 2020Q4

REPORT INFORMATION
  Report Type: Spontaneous
  Country: IT (occurrence: IT)
  Receive Date: 20200905
  Receipt Date: 20201105
  Transmission Date: 20210113
  Serious: Yes (Other)
  Sender: FDA-Public Use
  Company Number: IT-AUROBINDO-AUR-APL-2020-046214

PATIENT
  Age: 21 Year
  Sex: Male

DRUGS (2)
  1. KETODOL [Concomitant]
     Indication: EAR PAIN
     Dosage: 1 DOSAGE FORM
     Route: 048
     Dates: start: 20200820
  2. MOXIFLOXACIN. [Suspect]
     Active Substance: MOXIFLOXACIN
     Indication: EAR PAIN
     Dosage: 1 DOSAGE FORM, TOTAL
     Route: 048
     Dates: start: 20200820, end: 20200820

REACTIONS (3)
  - Sensation of foreign body [Recovering/Resolving]
  - Dyspnoea [Recovering/Resolving]
  - Eyelid oedema [Recovering/Resolving]

NARRATIVE: CASE EVENT DATE: 20200820
